FAERS Safety Report 10668007 (Version 8)
Quarter: 2015Q4

REPORT INFORMATION
  Report Type: Spontaneous
  Country: US (occurrence: US)
  Receive Date: 20141222
  Receipt Date: 20151217
  Transmission Date: 20160304
  Serious: Yes (Other)
  Sender: FDA-Public Use
  Company Number: US-GLAXOSMITHKLINE-A1048260A

PATIENT

DRUGS (3)
  1. SORIATANE [Suspect]
     Active Substance: ACITRETIN
     Indication: SKIN LESION
     Dosage: 25 MG, U
  2. SORIATANE [Suspect]
     Active Substance: ACITRETIN
     Indication: BASAL CELL CARCINOMA
  3. SORIATANE [Suspect]
     Active Substance: ACITRETIN
     Indication: PSORIASIS
     Dosage: 25 MG UNKNOWN DOSING
     Route: 065
     Dates: start: 20101130

REACTIONS (3)
  - Malignant melanoma [Not Recovered/Not Resolved]
  - Basal cell carcinoma [Not Recovered/Not Resolved]
  - Therapeutic response unexpected [Unknown]
